FAERS Safety Report 24746727 (Version 3)
Quarter: 2025Q1

REPORT INFORMATION
  Report Type: Spontaneous
  Country: JP (occurrence: JP)
  Receive Date: 20241218
  Receipt Date: 20250214
  Transmission Date: 20250409
  Serious: Yes (Hospitalization, Other)
  Sender: GALDERMA
  Company Number: JP-GALDERMA-JP2024016602

PATIENT

DRUGS (2)
  1. NEMOLIZUMAB [Suspect]
     Active Substance: NEMOLIZUMAB
     Indication: Neurodermatitis
     Route: 058
     Dates: start: 20241008, end: 20241008
  2. AMENAMEVIR [Concomitant]
     Active Substance: AMENAMEVIR
     Indication: Herpes zoster
     Dates: start: 202411

REACTIONS (2)
  - Pemphigoid [Not Recovered/Not Resolved]
  - Asteatosis [Not Recovered/Not Resolved]

NARRATIVE: CASE EVENT DATE: 20241015
